FAERS Safety Report 16786441 (Version 1)
Quarter: 2019Q3

REPORT INFORMATION
  Report Type: Spontaneous
  Country: US (occurrence: US)
  Receive Date: 20190909
  Receipt Date: 20190909
  Transmission Date: 20191005
  Serious: Yes (Other)
  Sender: FDA-Public Use
  Company Number: US-BAUSCH-BL-2019-025468

PATIENT
  Age: 49 Year
  Sex: Male

DRUGS (4)
  1. RIFAXIMIN. [Suspect]
     Active Substance: RIFAXIMIN
     Indication: DIARRHOEA
     Dosage: STAR DATE: SEVERAL MONTHS AGO
     Route: 048
     Dates: start: 2019, end: 2019
  2. RIFAXIMIN. [Suspect]
     Active Substance: RIFAXIMIN
     Indication: PRODUCT USE IN UNAPPROVED INDICATION
  3. RIFAXIMIN. [Suspect]
     Active Substance: RIFAXIMIN
     Indication: GASTROINTESTINAL SOUNDS ABNORMAL
  4. RIFAXIMIN. [Suspect]
     Active Substance: RIFAXIMIN
     Indication: FLATULENCE

REACTIONS (6)
  - Diarrhoea [Not Recovered/Not Resolved]
  - Product residue present [Unknown]
  - Anal incontinence [Not Recovered/Not Resolved]
  - Drug ineffective for unapproved indication [Unknown]
  - Product use in unapproved indication [Unknown]
  - Therapeutic product effective for unapproved indication [Unknown]

NARRATIVE: CASE EVENT DATE: 2019
